FAERS Safety Report 12395110 (Version 2)
Quarter: 2016Q2

REPORT INFORMATION
  Report Type: Spontaneous
  Country: US (occurrence: US)
  Receive Date: 20160523
  Receipt Date: 20160615
  Transmission Date: 20160815
  Serious: Yes (Hospitalization)
  Sender: FDA-Public Use
  Company Number: US-ACTELION-A-US2016-136490

PATIENT
  Age: 5 Week
  Sex: Male

DRUGS (8)
  1. ACETAMINOPHEN. [Concomitant]
     Active Substance: ACETAMINOPHEN
  2. HYDROMORPHONE [Concomitant]
     Active Substance: HYDROMORPHONE
  3. LOVENOX [Concomitant]
     Active Substance: ENOXAPARIN SODIUM
  4. SILDENAFIL. [Concomitant]
     Active Substance: SILDENAFIL
  5. OMEPRAZOLE. [Concomitant]
     Active Substance: OMEPRAZOLE
  6. TRACLEER [Suspect]
     Active Substance: BOSENTAN
     Indication: PULMONARY ARTERIAL HYPERTENSION
     Dosage: 15.625 MG, QD
     Route: 048
     Dates: start: 20160201
  7. TRACLEER [Suspect]
     Active Substance: BOSENTAN
     Dosage: 15.625 MG, EVERY OTHER DAY
     Route: 048
     Dates: start: 20160213
  8. FUROSEMIDE. [Concomitant]
     Active Substance: FUROSEMIDE

REACTIONS (5)
  - Liver function test increased [Recovered/Resolved]
  - Gamma-glutamyltransferase increased [Recovered/Resolved]
  - Blood bilirubin decreased [Recovered/Resolved]
  - Aspartate aminotransferase increased [Recovered/Resolved]
  - Alanine aminotransferase increased [Recovered/Resolved]

NARRATIVE: CASE EVENT DATE: 20160215
